FAERS Safety Report 8481137 (Version 4)
Quarter: 2013Q3

REPORT INFORMATION
  Report Type: Report from Study
  Country: US (occurrence: US)
  Receive Date: 20120328
  Receipt Date: 20130830
  Transmission Date: 20140515
  Serious: Yes (Other)
  Sender: FDA-Public Use
  Company Number: US-ELI_LILLY_AND_COMPANY-US201203005237

PATIENT
  Sex: Female

DRUGS (2)
  1. TERIPARATIDE [Suspect]
     Indication: OSTEOPOROSIS
     Dosage: 20 UG, QD
     Dates: start: 201202, end: 20120411
  2. TERIPARATIDE [Suspect]
     Dosage: 20 UG, QD

REACTIONS (11)
  - Pelvic fracture [Recovered/Resolved]
  - Fall [Recovered/Resolved]
  - Wrist fracture [Unknown]
  - Pelvic pain [Unknown]
  - Fear [Unknown]
  - Bone disorder [Not Recovered/Not Resolved]
  - Insomnia [Unknown]
  - Muscle spasms [Unknown]
  - Blood calcium increased [Unknown]
  - Incorrect product storage [Unknown]
  - Bone density decreased [Unknown]
